FAERS Safety Report 9344714 (Version 1)
Quarter: 2013Q2

REPORT INFORMATION
  Report Type: Spontaneous
  Country: US (occurrence: US)
  Receive Date: 20130612
  Receipt Date: 20130612
  Transmission Date: 20140414
  Serious: Yes (Death, Congenital Anomaly, Other)
  Sender: FDA-Public Use
  Company Number: US-PFIZER INC-2013173836

PATIENT
  Sex: Female

DRUGS (11)
  1. ZOLOFT [Suspect]
     Dosage: UNK
     Route: 064
     Dates: start: 200312, end: 200405
  2. ONE A DAY MULTIVITAMINS [Concomitant]
     Dosage: UNK
     Route: 064
  3. PRENATAL VITAMINS [Concomitant]
     Dosage: UNK
     Route: 064
  4. ALLEGRA [Concomitant]
     Dosage: UNK
     Route: 064
  5. HYDROCODONE/IBUPROFEN [Concomitant]
     Dosage: UNK
     Route: 064
  6. LEXAPRO [Concomitant]
     Dosage: UNK
     Route: 064
  7. ALBUTEROL [Concomitant]
     Dosage: UNK
     Route: 064
  8. FLOVENT [Concomitant]
     Dosage: UNK
     Route: 064
  9. TYLENOL #3 [Concomitant]
     Dosage: UNK
     Route: 064
  10. ALEVE [Concomitant]
     Dosage: UNK
     Route: 064
  11. FLONASE [Concomitant]
     Dosage: UNK
     Route: 064

REACTIONS (11)
  - Foetal exposure during pregnancy [Fatal]
  - Coarctation of the aorta [Fatal]
  - Hydrops foetalis [Fatal]
  - Persistent foetal circulation [Unknown]
  - Patent ductus arteriosus [Unknown]
  - Hypothyroidism [Unknown]
  - Pulmonary haemorrhage [Unknown]
  - Neonatal hypotension [Unknown]
  - Premature baby [Unknown]
  - Lung disorder [Unknown]
  - Atrial flutter [Unknown]
